FAERS Safety Report 9648443 (Version 2)
Quarter: 2013Q4

REPORT INFORMATION
  Report Type: Spontaneous
  Country: US (occurrence: US)
  Receive Date: 20131028
  Receipt Date: 20131126
  Transmission Date: 20140711
  Serious: Yes (Other)
  Sender: FDA-Public Use
  Company Number: US-BAYER-2013-130424

PATIENT
  Age: 21 Year
  Sex: Female
  Weight: 75 kg

DRUGS (1)
  1. MIRENA [Suspect]
     Indication: CONTRACEPTION
     Dosage: 20 MCG/24HR, CONT
     Route: 015

REACTIONS (6)
  - Vaginal haemorrhage [None]
  - Device expulsion [None]
  - Pain [None]
  - Menstrual disorder [None]
  - Abdominal pain upper [Recovered/Resolved]
  - Menorrhagia [Recovering/Resolving]
